FAERS Safety Report 4467951-3 (Version None)
Quarter: 2004Q4

REPORT INFORMATION
  Report Type: 
  Country: None (occurrence: None)
  Receive Date: 20041007
  Receipt Date: 20040928
  Transmission Date: 20050328
  Serious: Yes (Disabling)
  Sender: FDA-Public Use
  Company Number: PHBS2004JP13021

PATIENT
  Age: 58 Year
  Sex: Female

DRUGS (1)
  1. VOLTAREN [Suspect]
     Indication: INTRA-CEREBRAL ANEURYSM OPERATION
     Dosage: 25 MG, ONCE/SINGLE
     Route: 054
     Dates: start: 20040927, end: 20040927

REACTIONS (2)
  - BLOOD PRESSURE SYSTOLIC DECREASED [None]
  - MONOPLEGIA [None]
